FAERS Safety Report 10704501 (Version 1)
Quarter: 2014Q4

REPORT INFORMATION
  Report Type: Report from Study
  Country: US (occurrence: None)
  Receive Date: 20141224
  Receipt Date: 20141224
  Transmission Date: 20150529
  Serious: No
  Sender: FDA-Public Use
  Company Number: CABO-14004865

PATIENT
  Age: 83 Year
  Sex: Male

DRUGS (9)
  1. COMETRIQ [Suspect]
     Active Substance: CABOZANTINIB S-MALATE
     Indication: PROSTATE CANCER
     Route: 048
     Dates: start: 20140827, end: 20141020
  2. MULTIVITAMIN (VITAMINS NOS) [Concomitant]
     Active Substance: VITAMINS
  3. HYDROCHLOROTHIAZIDE (HYDROCHLOROTHIAZIDE) [Concomitant]
     Active Substance: HYDROCHLOROTHIAZIDE
  4. PROPANOLOL (PROPRANOLOL) [Concomitant]
  5. PRIMIDONE (PRIMIDONE) [Concomitant]
  6. OMEPRAZOLE (OMEPRAZOLE) [Concomitant]
     Active Substance: OMEPRAZOLE
  7. CALCIUM (CALCIUM) [Concomitant]
     Active Substance: CALCIUM
  8. XTANDI [Concomitant]
     Active Substance: ENZALUTAMIDE
  9. ASPIRIN (ACETYLSALICYLIC ACID) [Concomitant]
     Active Substance: ASPIRIN

REACTIONS (4)
  - Off label use [None]
  - Malaise [None]
  - Fatigue [None]
  - Diarrhoea [None]
